FAERS Safety Report 8238824-5 (Version None)
Quarter: 2012Q1

REPORT INFORMATION
  Report Type: 
  Country: None (occurrence: None)
  Receive Date: 20120327
  Receipt Date: 20120313
  Transmission Date: 20120608
  Serious: Yes (Hospitalization)
  Sender: FDA-Public Use
  Company Number: CHPA2012US005046

PATIENT
  Age: 70 Year
  Sex: Female

DRUGS (1)
  1. EXCEDRIN EXTRA STRENGTH TABLETS [Suspect]
     Indication: HEADACHE
     Dosage: UNK DF, PRN
     Route: 048

REACTIONS (7)
  - INTRASPINAL ABSCESS [None]
  - WEIGHT DECREASED [None]
  - BURNING SENSATION [None]
  - MUSCULOSKELETAL CHEST PAIN [None]
  - PYREXIA [None]
  - MALAISE [None]
  - HEMIPLEGIA [None]
